FAERS Safety Report 10385682 (Version 2)
Quarter: 2014Q3

REPORT INFORMATION
  Report Type: Spontaneous
  Country: JP (occurrence: JP)
  Receive Date: 20140814
  Receipt Date: 20140818
  Transmission Date: 20150326
  Serious: Yes (Other)
  Sender: FDA-Public Use
  Company Number: JP-SA-2014SA107308

PATIENT
  Age: 70 Year
  Sex: Female

DRUGS (7)
  1. DOXIFLURIDINE [Concomitant]
     Active Substance: DOXIFLURIDINE
     Indication: BREAST CANCER
     Dates: start: 2011, end: 201108
  2. DOCETAXEL [Suspect]
     Active Substance: DOCETAXEL
     Indication: BREAST CANCER METASTATIC
     Route: 065
     Dates: start: 201012
  3. ZOLEDRONIC ACID [Concomitant]
     Active Substance: ZOLEDRONIC ACID
     Indication: METASTASES TO BONE
     Dates: start: 200803
  4. DOXIFLURIDINE [Concomitant]
     Active Substance: DOXIFLURIDINE
     Indication: BREAST CANCER
     Dates: start: 2011, end: 201204
  5. CYCLOPHOSPHAMIDE. [Suspect]
     Active Substance: CYCLOPHOSPHAMIDE
     Indication: BREAST CANCER METASTATIC
     Dosage: DRUG WAS ADMINISTERED ON DAY 1-14 ORALLY, IN 28 DAYS/CYCLE
     Route: 048
     Dates: start: 2011
  6. DOXIFLURIDINE [Concomitant]
     Active Substance: DOXIFLURIDINE
     Indication: BREAST CANCER
     Dates: start: 2012
  7. MEDROXYPROGESTERONE ACETATE. [Concomitant]
     Active Substance: MEDROXYPROGESTERONE ACETATE
     Indication: BREAST CANCER
     Dates: start: 2011

REACTIONS (6)
  - Gait disturbance [Unknown]
  - Swelling [Unknown]
  - Nocturia [Unknown]
  - Arthralgia [Unknown]
  - Malaise [Unknown]
  - Hypoaesthesia [Unknown]

NARRATIVE: CASE EVENT DATE: 201105
